FAERS Safety Report 5376892-9 (Version None)
Quarter: 2007Q2

REPORT INFORMATION
  Report Type: 
  Country: None (occurrence: None)
  Receive Date: 20070628
  Receipt Date: 20070628
  Transmission Date: 20071010
  Serious: Yes (Hospitalization)
  Sender: FDA-Public Use
  Company Number: None

PATIENT
  Age: 74 Year
  Sex: Female
  Weight: 74 kg

DRUGS (1)
  1. LEVAQUIN [Suspect]
     Indication: POSTOPERATIVE WOUND INFECTION
     Dosage: ORAL;500.0 MILLIGRAM
     Route: 048
     Dates: start: 20070620, end: 20070621

REACTIONS (1)
  - ANGIOEDEMA [None]
